FAERS Safety Report 5962275-7 (Version None)
Quarter: 2008Q4

REPORT INFORMATION
  Report Type: 
  Country: None (occurrence: None)
  Receive Date: 20081121
  Receipt Date: 20081120
  Transmission Date: 20090506
  Serious: Yes (Other)
  Sender: FDA-Public Use
  Company Number: DE-B.I. PHARMACEUTICALS,INC./RIDGEFIELD-2008-DE-07004DE

PATIENT
  Sex: Female
  Weight: 63 kg

DRUGS (4)
  1. MICARDIS [Suspect]
     Indication: HYPERTENSION
     Dosage: 1ANZ
     Route: 048
     Dates: start: 20080721
  2. VERAPAMIL [Suspect]
     Indication: TACHYCARDIA
  3. ATROVENT DA [Concomitant]
     Indication: ASTHMA
     Route: 055
  4. VIANI TH [Concomitant]
     Indication: ASTHMA

REACTIONS (2)
  - LOSS OF CONSCIOUSNESS [None]
  - SYNCOPE [None]
